FAERS Safety Report 9812723 (Version 1)
Quarter: 2014Q1

REPORT INFORMATION
  Report Type: Spontaneous
  Country: US (occurrence: US)
  Receive Date: 20140113
  Receipt Date: 20140113
  Transmission Date: 20141002
  Serious: Yes (Hospitalization)
  Sender: FDA-Public Use
  Company Number: 2013SP007694

PATIENT
  Age: 12 Year
  Sex: Male

DRUGS (4)
  1. VANCOMYCIN [Suspect]
     Indication: ANTIBIOTIC THERAPY
  2. VANCOMYCIN [Suspect]
     Indication: SINUSITIS BACTERIAL
  3. CEFOTAXIME [Concomitant]
     Indication: ANTIBIOTIC THERAPY
  4. METRONIDAZOLE [Concomitant]
     Indication: ANTIBIOTIC THERAPY

REACTIONS (1)
  - Drug effect decreased [Unknown]
